FAERS Safety Report 10173682 (Version 1)
Quarter: 2014Q2

REPORT INFORMATION
  Report Type: Spontaneous
  Country: GB (occurrence: GB)
  Receive Date: 20140515
  Receipt Date: 20140515
  Transmission Date: 20141212
  Serious: Yes (Other)
  Sender: FDA-Public Use
  Company Number: GB-PFIZER INC-2014129128

PATIENT
  Age: 20 Year
  Sex: Female
  Weight: 103 kg

DRUGS (2)
  1. IBUPROFEN [Suspect]
     Indication: WISDOM TEETH REMOVAL
     Dosage: 2 X 200 MG EVERY 4 HOURS
     Route: 048
     Dates: start: 20140417, end: 20140427
  2. CO-CODAMOL [Concomitant]
     Dosage: UNK

REACTIONS (4)
  - Lethargy [Not Recovered/Not Resolved]
  - Vomiting [Not Recovered/Not Resolved]
  - Malaise [Not Recovered/Not Resolved]
  - Chest pain [Not Recovered/Not Resolved]
